FAERS Safety Report 15236419 (Version 2)
Quarter: 2018Q3

REPORT INFORMATION
  Report Type: Report from Study
  Country: AT (occurrence: AT)
  Receive Date: 20180803
  Receipt Date: 20180914
  Transmission Date: 20181010
  Serious: Yes (Hospitalization)
  Sender: FDA-Public Use
  Company Number: AT-ROCHE-2162318

PATIENT
  Age: 42 Year
  Sex: Female
  Weight: 58 kg

DRUGS (23)
  1. TRASTUZUMAB. [Suspect]
     Active Substance: TRASTUZUMAB
     Indication: HER-2 POSITIVE BREAST CANCER
     Dosage: FREQUENCY: Q3W ? EVERY 3 WEEKS MOST RECENT DOSE PRIOR TO THE EVENT: 30/JAN/2018
     Route: 042
     Dates: start: 20180109, end: 20180109
  2. TAXOTERE [Suspect]
     Active Substance: DOCETAXEL
     Indication: BREAST CANCER
     Dosage: Q3W ? EVERY 3 WEEKS
     Route: 042
     Dates: start: 20180109
  3. DUROTIV [Concomitant]
     Active Substance: ESOMEPRAZOLE
     Route: 065
     Dates: start: 20180115
  4. EMEND [Concomitant]
     Active Substance: APREPITANT
     Dosage: ONGOING = CHECKED
     Route: 065
     Dates: start: 20180109
  5. FORTECORTIN [Concomitant]
     Active Substance: DEXAMETHASONE
     Dosage: ONGOING = CHECKED
     Route: 065
     Dates: start: 20180109
  6. PERTUZUMAB. [Suspect]
     Active Substance: PERTUZUMAB
     Indication: HER-2 POSITIVE BREAST CANCER
     Dosage: FREQUENCY: Q3W ? EVERY 3 WEEKS MOST RECENT DOSE PRIOR TO THE EVENT: 30/JAN/2018
     Route: 042
     Dates: start: 20180109, end: 20180109
  7. ZOFRAN [Concomitant]
     Active Substance: ONDANSETRON HYDROCHLORIDE
     Route: 065
     Dates: start: 20180115
  8. FORTECORTIN [Concomitant]
     Active Substance: DEXAMETHASONE
     Dosage: ONGOING = CHECKED
     Route: 065
     Dates: start: 20180109
  9. BEPANTHEN MOUTH WASH (AUSTRIA) [Concomitant]
     Route: 065
     Dates: start: 20180115
  10. BUSCOPAN [Concomitant]
     Active Substance: BUTYLSCOPOLAMINE BROMIDE
     Indication: PANCREATITIS
     Route: 065
     Dates: start: 20180719, end: 20180719
  11. NALBUPHINE [Concomitant]
     Active Substance: NALBUPHINE
     Indication: PANCREATITIS
     Route: 065
     Dates: start: 20180719, end: 20180719
  12. FORLAX [Concomitant]
     Active Substance: POLYETHYLENE GLYCOL 4000
     Route: 065
     Dates: start: 20180115
  13. NOVALGIN (AUSTRIA) [Concomitant]
     Indication: PANCREATITIS
     Route: 065
     Dates: start: 20180719, end: 20180719
  14. BUSCAPINE [Concomitant]
     Active Substance: BUTYLSCOPOLAMINE
     Indication: PANCREATITIS
     Route: 065
     Dates: start: 20180719, end: 20180719
  15. FORTECORTIN [Concomitant]
     Active Substance: DEXAMETHASONE
     Route: 065
     Dates: start: 20180109
  16. PASPERTIN (AUSTRIA) [Concomitant]
     Indication: PANCREATITIS
     Route: 065
     Dates: start: 20180719, end: 20180719
  17. MEXALEN [Concomitant]
     Active Substance: ACETAMINOPHEN
     Route: 065
     Dates: start: 20180115
  18. XGEVA [Suspect]
     Active Substance: DENOSUMAB
     Indication: BREAST CANCER
     Dosage: Q4W ? EVERY 4 WEEKS
     Route: 058
     Dates: start: 20180109
  19. ZOFRAN [Concomitant]
     Active Substance: ONDANSETRON HYDROCHLORIDE
     Route: 065
     Dates: start: 20180109
  20. EMEND [Concomitant]
     Active Substance: APREPITANT
     Route: 065
     Dates: start: 20180110
  21. LONQUEX [Concomitant]
     Active Substance: LIPEGFILGRASTIM
     Route: 065
     Dates: start: 20180109
  22. ZOFRAN [Concomitant]
     Active Substance: ONDANSETRON HYDROCHLORIDE
     Dosage: ONGOING = CHECKED
     Route: 065
     Dates: start: 20180109
  23. DIBONDRIN [Concomitant]
     Active Substance: DIPHENHYDRAMINE HYDROCHLORIDE
     Route: 065
     Dates: start: 20180109

REACTIONS (1)
  - Pancreatitis [Recovering/Resolving]

NARRATIVE: CASE EVENT DATE: 20180719
